FAERS Safety Report 4833613-3 (Version None)
Quarter: 2005Q4

REPORT INFORMATION
  Report Type: 
  Country: None (occurrence: None)
  Receive Date: 20051121
  Receipt Date: 20051111
  Transmission Date: 20060501
  Serious: Yes (Death, Other)
  Sender: FDA-Public Use
  Company Number: PHBS2005US16779

PATIENT
  Age: 50 Year
  Sex: Male

DRUGS (7)
  1. CYCLOSPORINE [Suspect]
     Indication: STEM CELL TRANSPLANT
     Route: 065
  2. PREDNISONE [Suspect]
     Indication: STEM CELL TRANSPLANT
     Dosage: 50 MG/D
     Route: 065
  3. PREDNISONE [Suspect]
     Dosage: 2 MG/KG/D
  4. SULFAMETHOXAZOLE + TRIMETHOPRIM [Concomitant]
  5. VALACYCLOVIR HCL [Concomitant]
  6. ITRACONAZOLE [Concomitant]
  7. ANTITHYMOCYTE IMMUNOGLOBULIN [Concomitant]
     Dosage: 30 MG/KG, Q48H

REACTIONS (12)
  - COUGH [None]
  - GRAFT VERSUS HOST DISEASE [None]
  - LACTOBACILLUS INFECTION [None]
  - LUNG DISORDER [None]
  - LUNG INFECTION [None]
  - NEUTROPHIL COUNT DECREASED [None]
  - PNEUMONIA BACTERIAL [None]
  - RESPIRATORY FAILURE [None]
  - RHODOCOCCUS INFECTION [None]
  - STAPHYLOCOCCAL INFECTION [None]
  - STREPTOCOCCAL INFECTION [None]
  - WHITE BLOOD CELL COUNT DECREASED [None]
